FAERS Safety Report 9971924 (Version 1)
Quarter: 2014Q1

REPORT INFORMATION
  Report Type: Report from Study
  Country: US (occurrence: US)
  Receive Date: 20140306
  Receipt Date: 20140306
  Transmission Date: 20141002
  Serious: No
  Sender: FDA-Public Use
  Company Number: US-ABBVIE-13P-163-1150152-00

PATIENT
  Age: 59 Year
  Sex: Female

DRUGS (10)
  1. HUMIRA [Suspect]
     Indication: CROHN^S DISEASE
     Dosage: LOADING DOSE
     Dates: start: 20130831
  2. HUMIRA [Suspect]
     Dosage: SECOND LOADING DOSE
     Dates: start: 20130914
  3. LIPITOR [Concomitant]
     Indication: BLOOD CHOLESTEROL INCREASED
     Dosage: 80 MG DAILY
  4. BISTOLIC [Concomitant]
     Indication: HYPERTENSION
  5. NORVASC [Concomitant]
     Indication: ANGINA PECTORIS
  6. ALLEGRA [Concomitant]
     Indication: SEASONAL ALLERGY
  7. ESCITALOPRAM [Concomitant]
     Indication: PRODUCT USED FOR UNKNOWN INDICATION
     Dosage: OCCASIONALLY
  8. SKELAXIN [Concomitant]
     Indication: MUSCLE RELAXANT THERAPY
  9. FLONASE [Concomitant]
     Indication: SEASONAL ALLERGY
  10. ZANTAC [Concomitant]
     Indication: GASTROOESOPHAGEAL REFLUX DISEASE

REACTIONS (1)
  - Diarrhoea [Recovered/Resolved]
